FAERS Safety Report 15400334 (Version 1)
Quarter: 2018Q3

REPORT INFORMATION
  Report Type: Spontaneous
  Country: US (occurrence: US)
  Receive Date: 20180919
  Receipt Date: 20180919
  Transmission Date: 20181010
  Serious: No
  Sender: FDA-Public Use
  Company Number: US-TEVA-811638ACC

PATIENT

DRUGS (1)
  1. FLUOXETINE [Suspect]
     Active Substance: FLUOXETINE HYDROCHLORIDE

REACTIONS (5)
  - Decreased interest [Unknown]
  - Nightmare [Unknown]
  - Crying [Unknown]
  - Fatigue [Unknown]
  - Depressed mood [Unknown]
